FAERS Safety Report 7981197-3 (Version None)
Quarter: 2011Q4

REPORT INFORMATION
  Report Type: 
  Country: None (occurrence: None)
  Receive Date: 20111212
  Receipt Date: 20111130
  Transmission Date: 20120403
  Serious: Yes (Hospitalization)
  Sender: FDA-Public Use
  Company Number: 2011SP048891

PATIENT
  Age: 10 Year
  Sex: Male

DRUGS (5)
  1. VINCRISTINE [Suspect]
     Indication: NEUROBLASTOMA
  2. TEMODAL [Suspect]
     Indication: NEUROBLASTOMA
     Dosage: PO
     Route: 048
  3. IRINOTECAN HCL [Suspect]
     Indication: NEUROBLASTOMA
  4. IFOSFAMIDE [Suspect]
     Indication: NEUROBLASTOMA
  5. ETOPOSIDE [Suspect]
     Indication: NEUROBLASTOMA

REACTIONS (2)
  - PANCREATIC PSEUDOCYST [None]
  - PANCREATITIS ACUTE [None]
